FAERS Safety Report 22147255 (Version 1)
Quarter: 2023Q1

REPORT INFORMATION
  Report Type: Spontaneous
  Country: PL (occurrence: PL)
  Receive Date: 20230328
  Receipt Date: 20230328
  Transmission Date: 20230417
  Serious: Yes (Hospitalization, Other)
  Sender: FDA-Public Use
  Company Number: PL-BoehringerIngelheim-2023-BI-227513

PATIENT
  Age: 76 Year
  Sex: Male

DRUGS (3)
  1. NINTEDANIB [Suspect]
     Active Substance: NINTEDANIB
     Indication: Product used for unknown indication
     Dates: start: 201912, end: 202009
  2. NINTEDANIB [Suspect]
     Active Substance: NINTEDANIB
     Dates: start: 202009, end: 202110
  3. NINTEDANIB [Suspect]
     Active Substance: NINTEDANIB
     Dosage: ONGOING, TREATMENT WELL TOLERATED
     Dates: start: 202208

REACTIONS (4)
  - Pulmonary embolism [Unknown]
  - Coronary arterial stent insertion [Unknown]
  - Coronary angioplasty [Unknown]
  - Diarrhoea [Unknown]

NARRATIVE: CASE EVENT DATE: 20200901
